FAERS Safety Report 5327686-1 (Version None)
Quarter: 2007Q2

REPORT INFORMATION
  Report Type: 
  Country: None (occurrence: None)
  Receive Date: 20070517
  Receipt Date: 20070510
  Transmission Date: 20071010
  Serious: Yes (Hospitalization)
  Sender: FDA-Public Use
  Company Number: HQWYE810106FEB07

PATIENT
  Sex: Female
  Weight: 57 kg

DRUGS (6)
  1. RAPAMUNE [Suspect]
     Indication: PROPHYLAXIS AGAINST TRANSPLANT REJECTION
     Route: 048
     Dates: start: 20060303, end: 20060101
  2. RAPAMUNE [Suspect]
     Route: 048
     Dates: start: 20060101, end: 20061117
  3. RAPAMUNE [Suspect]
     Route: 048
     Dates: start: 20061118, end: 20061123
  4. RAPAMUNE [Suspect]
     Route: 048
     Dates: start: 20061125, end: 20061221
  5. RAPAMUNE [Suspect]
     Route: 048
     Dates: start: 20061222
  6. MYFORTIC [Concomitant]
     Indication: PROPHYLAXIS AGAINST TRANSPLANT REJECTION
     Route: 048
     Dates: start: 20060303

REACTIONS (3)
  - CARDIAC FAILURE ACUTE [None]
  - DECUBITUS ULCER [None]
  - IMPAIRED HEALING [None]
